FAERS Safety Report 8188415-X (Version None)
Quarter: 2012Q1

REPORT INFORMATION
  Report Type: 
  Country: None (occurrence: None)
  Receive Date: 20120306
  Receipt Date: 20120224
  Transmission Date: 20120608
  Serious: Yes (Other)
  Sender: FDA-Public Use
  Company Number: PHHY2012MX016500

PATIENT
  Age: 82 Year
  Sex: Female

DRUGS (2)
  1. FORADIL [Suspect]
     Dosage: 1 DF, QD
     Dates: start: 20120201
  2. ONBREZ [Suspect]
     Indication: CHRONIC OBSTRUCTIVE PULMONARY DISEASE
     Dosage: 1 DF, QD
     Dates: start: 20110301

REACTIONS (1)
  - HAND FRACTURE [None]
